FAERS Safety Report 10149639 (Version 1)
Quarter: 2014Q2

REPORT INFORMATION
  Report Type: Spontaneous
  Country: US (occurrence: None)
  Receive Date: 20140501
  Receipt Date: 20140501
  Transmission Date: 20141212
  Serious: Yes (Hospitalization)
  Sender: FDA-Public Use
  Company Number: None

PATIENT
  Age: 79 Year
  Sex: Male

DRUGS (20)
  1. INSULIN [Suspect]
     Indication: HYPERGLYCAEMIA
     Dosage: ASPART 10 UNITS/ GLARGINE 5 UNITS WITH MEALS
     Route: 058
     Dates: start: 20130712, end: 20130829
  2. ACETAMINOPHEN [Concomitant]
  3. ACETAZOLAMIDE [Concomitant]
  4. ALPRAZOLAM [Concomitant]
  5. AMIODARONE [Concomitant]
  6. AMITRIPTYLINE [Concomitant]
  7. ASCORBIC ACID [Concomitant]
  8. BUMETANIDE [Concomitant]
  9. CHLORHEXADINE [Concomitant]
  10. COLLAGENASE OINTMENT [Concomitant]
  11. EPOETIN [Concomitant]
  12. FERROUS SULFATE [Concomitant]
  13. FUROSEMIDE [Concomitant]
  14. HEPARIN [Concomitant]
  15. INSULIN GLARGINE [Concomitant]
  16. INSULIN ASPART [Concomitant]
  17. METOPROLOL [Concomitant]
  18. OXYCODONE [Concomitant]
  19. PREDNISONE [Concomitant]
  20. VENLAFAXINE [Concomitant]

REACTIONS (3)
  - Lethargy [None]
  - Blood glucose decreased [None]
  - Hyperhidrosis [None]
